FAERS Safety Report 8819187 (Version 2)
Quarter: 2013Q1

REPORT INFORMATION
  Report Type: Spontaneous
  Country: US (occurrence: US)
  Receive Date: 20121001
  Receipt Date: 20130116
  Transmission Date: 20140127
  Serious: Yes (Other)
  Sender: FDA-Public Use
  Company Number: US-PFIZER INC-2012240651

PATIENT
  Age: 48 Year
  Sex: Female
  Weight: 74.83 kg

DRUGS (4)
  1. LYRICA [Suspect]
     Indication: PERIPHERAL NERVE INJURY
     Dosage: 150 MG, 3X/DAY
     Dates: start: 20091230
  2. LYRICA [Suspect]
     Indication: BACK DISORDER
  3. ROXICODONE [Concomitant]
     Indication: PAIN
     Dosage: 15 MG, 3X/DAY
  4. FLEXERIL [Concomitant]
     Indication: MUSCLE SPASMS
     Dosage: 10 MG, 3X/DAY

REACTIONS (4)
  - Blood pressure increased [Unknown]
  - Eye disorder [Unknown]
  - Visual impairment [Unknown]
  - Mood altered [Unknown]
